FAERS Safety Report 13285579 (Version 5)
Quarter: 2017Q3

REPORT INFORMATION
  Report Type: Spontaneous
  Country: FI (occurrence: FI)
  Receive Date: 20170302
  Receipt Date: 20170710
  Transmission Date: 20171127
  Serious: Yes (Disabling, Other)
  Sender: FDA-Public Use
  Company Number: FI-JNJFOC-20170225114

PATIENT
  Age: 36 Year
  Sex: Male

DRUGS (8)
  1. REMICADE [Suspect]
     Active Substance: INFLIXIMAB
     Indication: GASTROINTESTINAL INFECTION
     Route: 042
     Dates: end: 201601
  2. SOLU-MEDROL [Concomitant]
     Active Substance: METHYLPREDNISOLONE SODIUM SUCCINATE
     Route: 065
     Dates: start: 201511
  3. CORTISONE [Concomitant]
     Active Substance: CORTISONE\HYDROCORTISONE
     Route: 065
     Dates: start: 201511
  4. REMICADE [Suspect]
     Active Substance: INFLIXIMAB
     Indication: GASTROINTESTINAL INFLAMMATION
     Route: 042
  5. REMICADE [Suspect]
     Active Substance: INFLIXIMAB
     Indication: GASTROINTESTINAL INFLAMMATION
     Route: 042
     Dates: end: 201601
  6. REMICADE [Suspect]
     Active Substance: INFLIXIMAB
     Indication: GASTROINTESTINAL INFLAMMATION
     Route: 042
     Dates: start: 201511
  7. REMICADE [Suspect]
     Active Substance: INFLIXIMAB
     Indication: GASTROINTESTINAL INFECTION
     Route: 042
  8. REMICADE [Suspect]
     Active Substance: INFLIXIMAB
     Indication: GASTROINTESTINAL INFECTION
     Route: 042
     Dates: start: 201511

REACTIONS (29)
  - Road traffic accident [Unknown]
  - Quality of life decreased [Unknown]
  - Peripheral swelling [Unknown]
  - Alopecia [Unknown]
  - Back pain [Unknown]
  - Product use in unapproved indication [Unknown]
  - Fine motor skill dysfunction [Unknown]
  - Oedema peripheral [Unknown]
  - Visual impairment [Unknown]
  - Palpitations [Unknown]
  - Acne [Unknown]
  - Vertigo [Unknown]
  - Choking sensation [Unknown]
  - Muscular weakness [Unknown]
  - Cerebral infarction [Not Recovered/Not Resolved]
  - Night sweats [Unknown]
  - Cough [Not Recovered/Not Resolved]
  - Pyrexia [Unknown]
  - Spinal disorder [Unknown]
  - Dandruff [Unknown]
  - Dyspnoea [Unknown]
  - Off label use [Unknown]
  - Nail disorder [Unknown]
  - Nightmare [Unknown]
  - Dry skin [Not Recovered/Not Resolved]
  - Arthropathy [Not Recovered/Not Resolved]
  - Blood albumin decreased [Unknown]
  - Headache [Unknown]
  - Urticaria [Not Recovered/Not Resolved]

NARRATIVE: CASE EVENT DATE: 201511
